FAERS Safety Report 9036742 (Version 1)
Quarter: 2013Q1

REPORT INFORMATION
  Report Type: Report from Study
  Country: US (occurrence: US)
  Receive Date: 20130129
  Receipt Date: 20130129
  Transmission Date: 20140127
  Serious: No
  Sender: FDA-Public Use
  Company Number: US-ABBOTT-12P-163-0897133-00

PATIENT
  Age: 55 Year
  Sex: Male

DRUGS (2)
  1. HUMIRA 40 MG/0.8 ML PEN [Suspect]
     Indication: ANKYLOSING SPONDYLITIS
     Dates: start: 201101
  2. CELEXA [Concomitant]
     Indication: DEPRESSION
     Route: 048

REACTIONS (5)
  - Blood cholesterol increased [Unknown]
  - Aphthous stomatitis [Not Recovered/Not Resolved]
  - Tongue discolouration [Not Recovered/Not Resolved]
  - Hypertension [Unknown]
  - Oral herpes [Not Recovered/Not Resolved]
